FAERS Safety Report 6630395-X (Version None)
Quarter: 2010Q1

REPORT INFORMATION
  Report Type: 
  Country: None (occurrence: None)
  Receive Date: 20100311
  Receipt Date: 20090618
  Transmission Date: 20100710
  Serious: Yes (Hospitalization)
  Sender: FDA-Public Use
  Company Number: US-BIOGENIDEC-2009BI018726

PATIENT
  Age: 41 Year
  Sex: Female

DRUGS (1)
  1. AVONEX [Suspect]
     Indication: MULTIPLE SCLEROSIS
     Route: 030
     Dates: start: 20081209

REACTIONS (2)
  - FAECAL INCONTINENCE [None]
  - MULTIPLE SCLEROSIS RELAPSE [None]
